FAERS Safety Report 13054758 (Version 2)
Quarter: 2017Q1

REPORT INFORMATION
  Report Type: Spontaneous
  Country: US (occurrence: US)
  Receive Date: 20161222
  Receipt Date: 20170103
  Transmission Date: 20170428
  Serious: Yes (Other)
  Sender: FDA-Public Use
  Company Number: US-EMERGENT BIOSOLUTIONS-16BA00165SP

PATIENT
  Age: 1 Month
  Sex: Female
  Weight: 3.68 kg

DRUGS (6)
  1. ZANTAC [Concomitant]
     Active Substance: RANITIDINE HYDROCHLORIDE
     Indication: PROPHYLAXIS AGAINST GASTROINTESTINAL ULCER
     Dosage: 7.5 MG, QD
     Route: 049
     Dates: start: 20161201
  2. BABYBIG [Concomitant]
     Active Substance: HUMAN BOTULINUM NEUROTOXIN A/B IMMUNE GLOBULIN
     Indication: BOTULISM
     Dosage: 150 MG, SINGLE
     Route: 042
     Dates: start: 20161115, end: 20161115
  3. FENTANYL. [Concomitant]
     Active Substance: FENTANYL
     Indication: LUMBAR PUNCTURE
     Dosage: 3.4 ?G, PRN
     Route: 042
     Dates: start: 20161201
  4. BAT [Suspect]
     Active Substance: EQUINE BOTULINUM NEUROTOXIN A/B/C/D/E/F/G IMMUNE FAB2
     Indication: BOTULISM
     Dosage: 18 ML, SINGLE
     Dates: start: 20161201, end: 20161201
  5. LASIX [Concomitant]
     Active Substance: FUROSEMIDE
     Indication: URINE OUTPUT DECREASED
     Dosage: 3 MG, SINGLE
     Route: 042
     Dates: start: 20161201, end: 20161201
  6. MULTIVITAMIN WITH MINERALS [Concomitant]
     Active Substance: MINERALS\VITAMINS
     Indication: ANAEMIA
     Dosage: 7 ML, QD
     Route: 049
     Dates: start: 20161201, end: 20161206

REACTIONS (3)
  - Anaemia [Recovered/Resolved]
  - Pneumatosis intestinalis [Recovered/Resolved]
  - Pyrexia [Recovered/Resolved]

NARRATIVE: CASE EVENT DATE: 20161201
